FAERS Safety Report 9473249 (Version 1)
Quarter: 2013Q3

REPORT INFORMATION
  Report Type: Spontaneous
  Country: GB (occurrence: GB)
  Receive Date: 20130823
  Receipt Date: 20130823
  Transmission Date: 20140515
  Serious: Yes (Life-Threatening, Hospitalization, Other)
  Sender: FDA-Public Use
  Company Number: GB-AMGEN-GBRSP2013059057

PATIENT
  Age: 63 Year
  Sex: Female
  Weight: 65 kg

DRUGS (2)
  1. ENBREL [Suspect]
     Indication: RHEUMATOID ARTHRITIS
     Dosage: 50 MG, WEEKLY
     Route: 058
     Dates: start: 201203
  2. SULFASALAZINE [Concomitant]
     Dosage: UNK

REACTIONS (4)
  - Diverticular perforation [Recovering/Resolving]
  - Abdominal pain [Unknown]
  - Sepsis [Unknown]
  - Peritonitis [Recovering/Resolving]
